FAERS Safety Report 12880742 (Version 1)
Quarter: 2016Q4

REPORT INFORMATION
  Report Type: Spontaneous
  Country: US (occurrence: US)
  Receive Date: 20161021
  Receipt Date: 20161021
  Transmission Date: 20170207
  Serious: Yes (Hospitalization)
  Sender: FDA-Public Use
  Company Number: None

PATIENT
  Age: 91 Year
  Sex: Male
  Weight: 90.2 kg

DRUGS (2)
  1. WARFARIN [Suspect]
     Active Substance: WARFARIN
     Indication: ISCHAEMIC STROKE
     Route: 048
     Dates: start: 20160603, end: 20160919
  2. WARFARIN [Suspect]
     Active Substance: WARFARIN
     Indication: ATRIAL FIBRILLATION
     Route: 048
     Dates: start: 20160603, end: 20160919

REACTIONS (4)
  - Sepsis [None]
  - Escherichia bacteraemia [None]
  - Retroperitoneal haematoma [None]
  - Cholangitis [None]

NARRATIVE: CASE EVENT DATE: 20160919
